FAERS Safety Report 19979568 (Version 2)
Quarter: 2025Q3

REPORT INFORMATION
  Report Type: Report from Study
  Country: US (occurrence: US)
  Receive Date: 20211021
  Receipt Date: 20250811
  Transmission Date: 20251020
  Serious: No
  Sender: SANOFI AVENTIS
  Company Number: US-SA-SAC20211013000056

PATIENT
  Age: 57 Year
  Sex: Male

DRUGS (7)
  1. DUPILUMAB [Suspect]
     Active Substance: DUPILUMAB
     Indication: Dermatitis
     Dosage: 300 MG, QOW
     Route: 058
     Dates: start: 20210806, end: 2025
  2. DUPILUMAB [Suspect]
     Active Substance: DUPILUMAB
     Indication: Dermatitis atopic
  3. PROLENSA [Concomitant]
     Active Substance: BROMFENAC SODIUM
  4. CETIRIZINE [Concomitant]
     Active Substance: CETIRIZINE HYDROCHLORIDE
  5. ATORVASTATIN [Concomitant]
     Active Substance: ATORVASTATIN
  6. VITAMIN D [Concomitant]
     Active Substance: VITAMIN D NOS
  7. ACYCLOVIR [Concomitant]
     Active Substance: ACYCLOVIR

REACTIONS (4)
  - Rash [Unknown]
  - Condition aggravated [Unknown]
  - Sleep disorder [Unknown]
  - Product use in unapproved indication [Unknown]

NARRATIVE: CASE EVENT DATE: 20210101
